FAERS Safety Report 4745240-7 (Version None)
Quarter: 2005Q3

REPORT INFORMATION
  Report Type: 
  Country: None (occurrence: None)
  Receive Date: 20050812
  Receipt Date: 20050803
  Transmission Date: 20060218
  Serious: Yes (Hospitalization)
  Sender: FDA-Public Use
  Company Number: A029018

PATIENT
  Age: 65 Year
  Sex: Male

DRUGS (3)
  1. CARDURA [Suspect]
     Indication: BENIGN PROSTATIC HYPERPLASIA
     Dosage: 2 MG (2 MG, 1 IN 1 D), ORAL
     Route: 048
     Dates: start: 19990801
  2. ACETYLSALIC ACID (ACETYLSALICYLIC ACID) [Concomitant]
  3. PIRETANIDE (PIRETANIDE) [Concomitant]

REACTIONS (1)
  - PROSTATIC OPERATION [None]
